FAERS Safety Report 10098966 (Version 1)
Quarter: 2014Q2

REPORT INFORMATION
  Report Type: Spontaneous
  Country: GB (occurrence: GB)
  Receive Date: 20140423
  Receipt Date: 20140423
  Transmission Date: 20141212
  Serious: Yes (Hospitalization)
  Sender: FDA-Public Use
  Company Number: PHHY2014GB046053

PATIENT
  Age: 91 Year
  Sex: Female

DRUGS (1)
  1. LORAZEPAM [Suspect]
     Indication: PRODUCT USED FOR UNKNOWN INDICATION
     Dosage: 3 MG, QD
     Route: 048

REACTIONS (10)
  - Pneumonia [Unknown]
  - Anaemia [Unknown]
  - Fall [Unknown]
  - Hyponatraemia [Unknown]
  - Hypothyroidism [Unknown]
  - Skin irritation [Unknown]
  - Pallor [Unknown]
  - Peripheral swelling [Unknown]
  - Aggression [Unknown]
  - Hallucination [Unknown]
